FAERS Safety Report 22064861 (Version 3)
Quarter: 2023Q2

REPORT INFORMATION
  Report Type: Spontaneous
  Country: US (occurrence: US)
  Receive Date: 20230306
  Receipt Date: 20230502
  Transmission Date: 20230722
  Serious: No
  Sender: FDA-Public Use
  Company Number: US-BoehringerIngelheim-2023-BI-222258

PATIENT
  Age: 82 Year
  Sex: Male

DRUGS (2)
  1. STRIVERDI RESPIMAT [Suspect]
     Active Substance: OLODATEROL HYDROCHLORIDE
     Indication: Chronic obstructive pulmonary disease
     Dosage: 2 SPRAYS A DAY;INHALATION SPRAY
     Route: 055
  2. FORTEO [Concomitant]
     Active Substance: TERIPARATIDE
     Indication: Osteoporosis

REACTIONS (8)
  - Spinal laminectomy [Unknown]
  - Spinal decompression [Unknown]
  - Headache [Not Recovered/Not Resolved]
  - Amnesia [Not Recovered/Not Resolved]
  - Synovial cyst [Recovering/Resolving]
  - Spinal laminectomy [Unknown]
  - Cataract [Recovered/Resolved]
  - Mobility decreased [Not Recovered/Not Resolved]

NARRATIVE: CASE EVENT DATE: 20210301
